FAERS Safety Report 11275320 (Version 3)
Quarter: 2015Q3

REPORT INFORMATION
  Report Type: Report from Study
  Country: JP (occurrence: JP)
  Receive Date: 20150716
  Receipt Date: 20150911
  Transmission Date: 20151125
  Serious: Yes (Other)
  Sender: FDA-Public Use
  Company Number: JP-BEH-2015052334

PATIENT
  Age: 84 Year
  Sex: Female
  Weight: 69.5 kg

DRUGS (50)
  1. WARFARIN POTASSIUM [Concomitant]
     Active Substance: WARFARIN POTASSIUM
     Dosage: START DATE 2011. ONGOING.
     Route: 048
     Dates: end: 20150623
  2. ETIZOLAM [Concomitant]
     Active Substance: ETIZOLAM
     Indication: INSOMNIA
     Route: 048
     Dates: start: 20150509, end: 20150622
  3. AZOSEMIDE [Concomitant]
     Active Substance: AZOSEMIDE
     Route: 048
     Dates: start: 20150509, end: 20150623
  4. BERAPROST SODIUM [Concomitant]
     Active Substance: BERAPROST SODIUM
     Dates: start: 20150509, end: 20150623
  5. DEXAMETHASONE. [Concomitant]
     Active Substance: DEXAMETHASONE
     Indication: STOMATITIS
     Dosage: 1 APPLICATION ORAL CAVITY AS NEEDED
     Dates: start: 20150509, end: 20150623
  6. HYALURONATE SODIUM [Concomitant]
     Active Substance: HYALURONATE SODIUM
     Indication: CATARACT
     Dosage: 1 DROP 4 TIMES PER DAY
     Route: 047
     Dates: start: 20150625
  7. FENTANYL CITRATE. [Concomitant]
     Active Substance: FENTANYL CITRATE
     Indication: INTERVENTIONAL PROCEDURE
     Route: 041
     Dates: start: 20150623, end: 20150623
  8. SOLITA [Concomitant]
     Route: 041
     Dates: start: 20150624, end: 20150624
  9. ACETATED RINGER^S SOLUTION WITH GLUCOSE [Concomitant]
     Route: 041
     Dates: start: 20150627, end: 20150629
  10. BISOPROLOL FUMERATE [Concomitant]
     Active Substance: BISOPROLOL FUMARATE
     Indication: ATRIAL FIBRILLATION
     Route: 048
     Dates: start: 20150624, end: 20150624
  11. OMEPRAZOLE. [Concomitant]
     Active Substance: OMEPRAZOLE
     Route: 048
     Dates: start: 20150509, end: 20150623
  12. OMEPRAZOLE. [Concomitant]
     Active Substance: OMEPRAZOLE
     Route: 048
     Dates: start: 20150627, end: 20150630
  13. SENNOSIDE [Concomitant]
     Active Substance: SENNOSIDES
     Indication: CONSTIPATION
     Route: 048
     Dates: start: 20150509, end: 20150622
  14. HYALURONATE SODIUM [Concomitant]
     Active Substance: HYALURONATE SODIUM
     Dosage: 1 DROP 4 TIMES PER DAY
     Route: 047
     Dates: start: 20150509, end: 20150623
  15. LIDOCAINE HYDROCHLORIDE. [Concomitant]
     Active Substance: LIDOCAINE HYDROCHLORIDE
     Indication: INTERVENTIONAL PROCEDURE
     Route: 061
     Dates: start: 20150623, end: 20150623
  16. ACETATED RINGER^S SOLUTION WITH GLUCOSE [Concomitant]
     Route: 041
     Dates: start: 20150623, end: 20150624
  17. WARFARIN POTASSIUM [Concomitant]
     Active Substance: WARFARIN POTASSIUM
     Dosage: START DATE 2011. ONGOING.
     Route: 048
     Dates: end: 20150623
  18. WARFARIN POTASSIUM [Concomitant]
     Active Substance: WARFARIN POTASSIUM
     Route: 048
     Dates: start: 20150704
  19. OMEPRAZOLE. [Concomitant]
     Active Substance: OMEPRAZOLE
     Route: 041
     Dates: start: 20150628, end: 20150630
  20. SENNOSIDE [Concomitant]
     Active Substance: SENNOSIDES
     Route: 048
     Dates: start: 20150624, end: 20150630
  21. LOXOPROFEN SODIUM HYDRATE [Concomitant]
     Active Substance: LOXOPROFEN SODIUM DIHYDRATE
     Indication: ARTHRALGIA
     Dates: start: 20150705, end: 20150706
  22. IOMEPROL [Concomitant]
     Active Substance: IOMEPROL
     Indication: INTERVENTIONAL PROCEDURE
     Route: 040
     Dates: start: 20150623, end: 20150623
  23. RIBOFLAVIN TETRABUTYRATE [Concomitant]
     Route: 048
     Dates: start: 20150625
  24. DICLOFENAC [Concomitant]
     Active Substance: DICLOFENAC
     Dosage: 1 PATCH AS NEEDED
     Route: 062
     Dates: start: 20150509, end: 20150623
  25. MAGNESIUM SULFATE. [Concomitant]
     Active Substance: MAGNESIUM SULFATE
     Indication: HYPOMAGNESAEMIA
     Dosage: 1 MEQ/ML
     Dates: start: 20150624, end: 20150624
  26. ACETATED RINGER^S SOLUTION [Concomitant]
     Indication: FLUID REPLACEMENT
     Route: 041
     Dates: start: 20150623, end: 20150623
  27. ASPIRIN. [Concomitant]
     Active Substance: ASPIRIN
     Indication: ATRIAL FIBRILLATION
     Route: 048
     Dates: start: 20150509, end: 20150623
  28. ATENOLOL. [Concomitant]
     Active Substance: ATENOLOL
     Indication: HYPERTENSION
     Route: 048
     Dates: start: 20150627
  29. RED BLOOD CELL [Concomitant]
     Indication: HAEMORRHAGE
     Dosage: 2 UNITS
     Dates: start: 20150623, end: 20150623
  30. VITAMIN K [Suspect]
     Active Substance: PHYTONADIONE
     Route: 041
     Dates: start: 20150623, end: 20150623
  31. WARFARIN POTASSIUM [Concomitant]
     Active Substance: WARFARIN POTASSIUM
     Route: 048
     Dates: start: 20150701, end: 20150703
  32. OMEPRAZOLE. [Concomitant]
     Active Substance: OMEPRAZOLE
     Indication: PROPHYLAXIS AGAINST GASTROINTESTINAL ULCER
     Route: 041
     Dates: start: 20150624, end: 20150624
  33. ATORVASTATIN CALCIUM HYDRATE [Concomitant]
     Active Substance: ATORVASTATIN CALCIUM
     Indication: DYSLIPIDAEMIA
     Route: 048
     Dates: start: 20150509, end: 20150623
  34. ATENOLOL. [Concomitant]
     Active Substance: ATENOLOL
     Indication: ATRIAL FIBRILLATION
     Route: 048
     Dates: start: 20150509, end: 20150622
  35. ETIZOLAM [Concomitant]
     Active Substance: ETIZOLAM
     Route: 048
     Dates: start: 20150624, end: 20150704
  36. BERAPROST SODIUM [Concomitant]
     Active Substance: BERAPROST SODIUM
     Route: 048
     Dates: start: 20150125
  37. CEFAZOLIN SODIUM. [Concomitant]
     Active Substance: CEFAZOLIN SODIUM
     Indication: INFECTION PROPHYLAXIS
     Route: 041
     Dates: start: 20150623, end: 20150623
  38. SOLITA [Concomitant]
     Indication: FLUID REPLACEMENT
     Route: 041
     Dates: start: 20150629, end: 20150701
  39. ASPIRIN. [Concomitant]
     Active Substance: ASPIRIN
     Route: 048
     Dates: start: 20150627
  40. RIBOFLAVIN TETRABUTYRATE [Concomitant]
     Indication: DYSLIPIDAEMIA
     Route: 048
     Dates: start: 20150509, end: 20150623
  41. AZULENE [Concomitant]
     Active Substance: AZULENE
     Indication: CATARACT
     Dosage: 1 DROP 4 TIMES PER DAY
     Route: 047
     Dates: start: 20150509, end: 20150623
  42. PIRENOXINE [Concomitant]
     Active Substance: PIRENOXINE
     Indication: CATARACT
     Dosage: 1 DROP 4 TIMES PER DAY
     Route: 047
     Dates: start: 20150625
  43. DICLOFENAC SODIUM (OPTHALMIC) [Concomitant]
     Indication: CATARACT
     Dosage: 1 DROP 4 TIMES PER DAY
     Route: 047
     Dates: start: 20150625
  44. BERIPLEX P/N [Suspect]
     Active Substance: COAGULATION FACTOR IX HUMAN\COAGULATION FACTOR VII HUMAN\COAGULATION FACTOR X HUMAN\PROTEIN C\PROTEIN S HUMAN\PROTHROMBIN
     Indication: THERAPEUTIC EMBOLISATION
     Dosage: 70ML. MAXIMUM INFUSION RATE 2.5 IU/KG/MIN
     Dates: start: 20150623, end: 20150623
  45. ATORVASTATIN CALCIUM HYDRATE [Concomitant]
     Active Substance: ATORVASTATIN CALCIUM
     Route: 048
     Dates: start: 20150624
  46. AZOSEMIDE [Concomitant]
     Active Substance: AZOSEMIDE
     Indication: HYPERTENSION
     Route: 048
     Dates: start: 20150625, end: 20150627
  47. BERAPROST SODIUM [Concomitant]
     Active Substance: BERAPROST SODIUM
     Indication: PERIPHERAL ARTERIAL OCCLUSIVE DISEASE
     Route: 048
     Dates: start: 20150705
  48. LOXOPROFEN SODIUM HYDRATE [Concomitant]
     Active Substance: LOXOPROFEN SODIUM DIHYDRATE
     Dates: start: 20150309, end: 20150623
  49. GLUTHIONE [Concomitant]
     Indication: CATARACT
     Dosage: 1 DOP 4 TIMES PER DAY
     Route: 047
     Dates: start: 20150509, end: 20150623
  50. ESOMEPRAZOLE MAGNESIUM HYDRATE [Concomitant]
     Indication: PROPHYLAXIS AGAINST GASTROINTESTINAL ULCER
     Dates: start: 20150625

REACTIONS (1)
  - Atrial thrombosis [Unknown]

NARRATIVE: CASE EVENT DATE: 20150626
